FAERS Safety Report 6585328-1 (Version None)
Quarter: 2010Q1

REPORT INFORMATION
  Report Type: 
  Country: None (occurrence: None)
  Receive Date: 20100217
  Receipt Date: 20100216
  Transmission Date: 20100710
  Serious: Yes (Other)
  Sender: FDA-Public Use
  Company Number: A0841161A

PATIENT
  Age: 71 Year
  Sex: Female

DRUGS (1)
  1. ALLI [Suspect]
     Route: 048
     Dates: start: 20100118, end: 20100122

REACTIONS (4)
  - ABDOMINAL PAIN UPPER [None]
  - HAEMORRHAGE [None]
  - PAINFUL DEFAECATION [None]
  - VOMITING [None]
